FAERS Safety Report 12671431 (Version 2)
Quarter: 2016Q4

REPORT INFORMATION
  Report Type: Spontaneous
  Country: LS (occurrence: LS)
  Receive Date: 20160822
  Receipt Date: 20161007
  Transmission Date: 20170207
  Serious: Yes (Death, Life-Threatening, Hospitalization)
  Sender: FDA-Public Use
  Company Number: LS-JNJFOC-20160815434

PATIENT
  Age: 63 Year
  Sex: Male
  Weight: 50 kg

DRUGS (11)
  1. KANAMYCINE [Suspect]
     Active Substance: KANAMYCIN SULFATE
     Indication: PULMONARY TUBERCULOSIS
     Route: 030
     Dates: start: 20151113
  2. IPRATROPIUM BROMIDE. [Concomitant]
     Active Substance: IPRATROPIUM BROMIDE
     Indication: BRONCHOSPASM
     Route: 065
     Dates: start: 20151115
  3. MAGNESIUM GLUCONATE [Concomitant]
     Active Substance: MAGNESIUM GLUCONATE
     Indication: HYPOKALAEMIA
     Route: 048
     Dates: start: 20151115
  4. BECLOMETHASONE [Concomitant]
     Active Substance: BECLOMETHASONE
     Indication: BRONCHOSPASM
     Route: 055
     Dates: start: 20151115
  5. PYRAZINAMIDE. [Suspect]
     Active Substance: PYRAZINAMIDE
     Indication: PULMONARY TUBERCULOSIS
     Route: 048
     Dates: start: 20151113
  6. CLARITHROMYCINE [Suspect]
     Active Substance: CLARITHROMYCIN
     Indication: PULMONARY TUBERCULOSIS
     Route: 048
     Dates: start: 20151113
  7. AMOXI CLAV [Suspect]
     Active Substance: AMOXICILLIN\CLAVULANATE POTASSIUM
     Indication: PULMONARY TUBERCULOSIS
     Route: 048
     Dates: start: 20151113
  8. FUROSEMIDE. [Concomitant]
     Active Substance: FUROSEMIDE
     Indication: CARDIAC FAILURE CONGESTIVE
     Route: 048
     Dates: start: 20160320
  9. SLOW K [Concomitant]
     Active Substance: POTASSIUM CHLORIDE
     Indication: HYPOKALAEMIA
     Route: 048
     Dates: start: 20151115
  10. TMC207 [Suspect]
     Active Substance: BEDAQUILINE
     Indication: PULMONARY TUBERCULOSIS
     Dosage: ONCE A DAY FOR THREE DAYS IN WEEK
     Route: 048
     Dates: start: 20151113
  11. CLOFAZIMINE [Suspect]
     Active Substance: CLOFAZIMINE
     Indication: PULMONARY TUBERCULOSIS
     Route: 048
     Dates: start: 20151113

REACTIONS (2)
  - Respiratory failure [Recovered/Resolved]
  - Death [Fatal]

NARRATIVE: CASE EVENT DATE: 20160219
